FAERS Safety Report 4742678-9 (Version None)
Quarter: 2005Q3

REPORT INFORMATION
  Report Type: 
  Country: None (occurrence: None)
  Receive Date: 20050811
  Receipt Date: 20050602
  Transmission Date: 20060218
  Serious: Yes (Hospitalization)
  Sender: FDA-Public Use
  Company Number: FR-BRISTOL-MYERS SQUIBB COMPANY-12992491

PATIENT
  Age: 53 Year
  Sex: Female
  Weight: 73 kg

DRUGS (3)
  1. REYATAZ [Suspect]
     Indication: HIV INFECTION
     Route: 048
     Dates: start: 20050525, end: 20050602
  2. COMBIVIR [Concomitant]
     Indication: HIV INFECTION
     Dates: start: 20011205
  3. COAPROVEL [Concomitant]
     Dates: start: 20011205

REACTIONS (3)
  - HYPERBILIRUBINAEMIA [None]
  - PYREXIA [None]
  - TOXIC SKIN ERUPTION [None]
